FAERS Safety Report 25527352 (Version 1)
Quarter: 2025Q3

REPORT INFORMATION
  Report Type: Spontaneous
  Country: CN (occurrence: CN)
  Receive Date: 20250708
  Receipt Date: 20250708
  Transmission Date: 20251021
  Serious: Yes (Hospitalization)
  Sender: SANDOZ
  Company Number: CN-SANDOZ-SDZ2025CN047451

PATIENT
  Age: 72 Year
  Sex: Male

DRUGS (2)
  1. VORICONAZOLE [Suspect]
     Active Substance: VORICONAZOLE
     Indication: Chills
     Dosage: 0.1 G, Q12H
     Route: 048
     Dates: start: 202505, end: 20250626
  2. VORICONAZOLE [Suspect]
     Active Substance: VORICONAZOLE
     Indication: Pyrexia
     Dosage: 200 MG, BID
     Route: 048
     Dates: start: 20250519

REACTIONS (3)
  - Drug level increased [Unknown]
  - Insomnia [Recovering/Resolving]
  - Vision blurred [Recovering/Resolving]

NARRATIVE: CASE EVENT DATE: 20250520
